FAERS Safety Report 7814317-1 (Version None)
Quarter: 2011Q4

REPORT INFORMATION
  Report Type: 
  Country: None (occurrence: None)
  Receive Date: 20111011
  Receipt Date: 20111003
  Transmission Date: 20120403
  Serious: No
  Sender: FDA-Public Use
  Company Number: 2011-01293

PATIENT
  Sex: Female

DRUGS (3)
  1. ASCORBIC ACID [Concomitant]
  2. ECHINACEA [Concomitant]
  3. ZICAM INTENSE SINUS RELIEF [Suspect]
     Dosage: ONCE 1-2 DAYS AGO

REACTIONS (1)
  - ANOSMIA [None]
